FAERS Safety Report 6726987-X (Version None)
Quarter: 2010Q2

REPORT INFORMATION
  Report Type: 
  Country: None (occurrence: None)
  Receive Date: 20100517
  Receipt Date: 20100512
  Transmission Date: 20101027
  Serious: No
  Sender: FDA-Public Use
  Company Number: US-BIOGENIDEC-2010BI015789

PATIENT
  Age: 45 Year
  Sex: Female

DRUGS (3)
  1. AVONEX [Suspect]
     Indication: MULTIPLE SCLEROSIS
     Route: 030
     Dates: start: 20030901
  2. AVONEX [Suspect]
     Route: 030
     Dates: start: 20000626, end: 20030801
  3. CORTISONE TAPERED DOSE [Concomitant]
     Indication: PARAESTHESIA
     Route: 048
     Dates: start: 20000501

REACTIONS (8)
  - ALOPECIA [None]
  - DEPRESSION [None]
  - DYSPEPSIA [None]
  - GENERAL SYMPTOM [None]
  - HEPATOMEGALY [None]
  - INCREASED TENDENCY TO BRUISE [None]
  - INFLUENZA LIKE ILLNESS [None]
  - WEIGHT INCREASED [None]
